FAERS Safety Report 20770071 (Version 1)
Quarter: 2022Q2

REPORT INFORMATION
  Report Type: Other
  Country: None (occurrence: US)
  Receive Date: 20220429
  Receipt Date: 20220429
  Transmission Date: 20220721
  Serious: No
  Sender: FDA-Public Use
  Company Number: US-Ascent Pharmaceuticals, Inc.-2128305

PATIENT

DRUGS (1)
  1. DEXTROAMPHET SACCHARAT, AMPHET ASPARTATE, DEXTROAMPHET SULFATE AND AMP [Suspect]
     Active Substance: AMPHETAMINE ASPARTATE\AMPHETAMINE SULFATE\DEXTROAMPHETAMINE SACCHARATE\DEXTROAMPHETAMINE SULFATE
     Indication: Attention deficit hyperactivity disorder
     Route: 048

REACTIONS (13)
  - Headache [Unknown]
  - Dyspepsia [Unknown]
  - Abdominal rigidity [Unknown]
  - Hepatic pain [Unknown]
  - Pollakiuria [Unknown]
  - Fatigue [Unknown]
  - Yawning [Unknown]
  - Disturbance in attention [Unknown]
  - Apathy [Unknown]
  - Movement disorder [Unknown]
  - Quality of life decreased [Unknown]
  - Product substitution issue [Unknown]
  - Drug ineffective [Unknown]
